FAERS Safety Report 19819135 (Version 2)
Quarter: 2021Q3

REPORT INFORMATION
  Report Type: Report from Study
  Country: None (occurrence: JP)
  Receive Date: 20210913
  Receipt Date: 20210929
  Transmission Date: 20211014
  Serious: Yes (Death)
  Sender: FDA-Public Use
  Company Number: JP-ABBVIE-21K-087-4076075-00

PATIENT
  Age: 64 Year
  Sex: Male
  Weight: 58.4 kg

DRUGS (4)
  1. AZACITIDINE. [Concomitant]
     Active Substance: AZACITIDINE
     Indication: PRODUCT USED FOR UNKNOWN INDICATION
     Route: 050
     Dates: start: 20210510, end: 20210516
  2. VENCLEXTA [Suspect]
     Active Substance: VENETOCLAX
     Indication: ACUTE MYELOID LEUKAEMIA
     Route: 048
     Dates: start: 20210510, end: 202105
  3. DOTINURAD [Concomitant]
     Indication: PROPHYLAXIS
     Route: 048
     Dates: start: 20210510, end: 20210517
  4. VENCLEXTA [Suspect]
     Active Substance: VENETOCLAX
     Route: 048
     Dates: start: 20210514, end: 20210517

REACTIONS (2)
  - Tumour lysis syndrome [Fatal]
  - Cellulitis [Fatal]

NARRATIVE: CASE EVENT DATE: 20210510
